FAERS Safety Report 16720323 (Version 1)
Quarter: 2019Q3

REPORT INFORMATION
  Report Type: Spontaneous
  Country: IT (occurrence: IT)
  Receive Date: 20190820
  Receipt Date: 20190820
  Transmission Date: 20191005
  Serious: Yes (Hospitalization)
  Sender: FDA-Public Use
  Company Number: IT-MYLANLABS-2019M1076806

PATIENT
  Age: 77 Year
  Sex: Male

DRUGS (7)
  1. ACETYLSALICYLIC ACID [Concomitant]
     Active Substance: ASPIRIN
     Dosage: UNK
  2. LANSOX [Concomitant]
     Active Substance: LANSOPRAZOLE
  3. TORVAST [Concomitant]
     Active Substance: ATORVASTATIN
     Dosage: UNK
  4. BRILIQUE [Concomitant]
     Active Substance: TICAGRELOR
     Dosage: UNK
  5. NEBIVOLOL. [Suspect]
     Active Substance: NEBIVOLOL
     Indication: PRODUCT USED FOR UNKNOWN INDICATION
     Dosage: UNK
     Dates: start: 20180709, end: 20180709
  6. LORAZEPAM. [Suspect]
     Active Substance: LORAZEPAM
     Indication: PRODUCT USED FOR UNKNOWN INDICATION
     Dosage: UNK
     Dates: start: 20180709, end: 20180709
  7. RAMIPRIL. [Suspect]
     Active Substance: RAMIPRIL
     Indication: PRODUCT USED FOR UNKNOWN INDICATION
     Dosage: UNK
     Dates: start: 20180709, end: 20180709

REACTIONS (2)
  - Agitation [Unknown]
  - Drug abuse [Unknown]

NARRATIVE: CASE EVENT DATE: 20180709
